FAERS Safety Report 9681142 (Version 1)
Quarter: 2013Q4

REPORT INFORMATION
  Report Type: Spontaneous
  Country: AU (occurrence: AU)
  Receive Date: 20131111
  Receipt Date: 20131111
  Transmission Date: 20140711
  Serious: Yes (Death)
  Sender: FDA-Public Use
  Company Number: AU-PFIZER INC-2013315107

PATIENT
  Sex: Male

DRUGS (1)
  1. BENEFIX [Suspect]
     Dosage: 2000 IU, UNK

REACTIONS (1)
  - Death [Fatal]
